FAERS Safety Report 6934611-6 (Version None)
Quarter: 2010Q3

REPORT INFORMATION
  Report Type: 
  Country: None (occurrence: None)
  Receive Date: 20100820
  Receipt Date: 20100811
  Transmission Date: 20110219
  Serious: Yes (Death)
  Sender: FDA-Public Use
  Company Number: KE-B.I. PHARMACEUTICALS,INC./RIDGEFIELD-2010-DE-04366GD

PATIENT
  Sex: Female

DRUGS (4)
  1. NEVIRAPINE [Suspect]
     Indication: HIV INFECTION
     Dosage: 200 MG
     Route: 048
  2. NEVIRAPINE [Suspect]
     Dosage: 400 MG
     Route: 048
  3. ZIDOVUDINE [Suspect]
     Indication: HIV INFECTION
     Dosage: 600 MG
     Route: 048
  4. LAMIVUDINE [Suspect]
     Indication: HIV INFECTION
     Dosage: 300 MG
     Route: 048

REACTIONS (1)
  - CARDIAC FAILURE [None]
